FAERS Safety Report 23884142 (Version 1)
Quarter: 2024Q2

REPORT INFORMATION
  Report Type: Spontaneous
  Country: US (occurrence: None)
  Receive Date: 20240521
  Receipt Date: 20240521
  Transmission Date: 20240716
  Serious: Yes (Hospitalization)
  Sender: FDA-Public Use
  Company Number: None

PATIENT
  Sex: Female

DRUGS (7)
  1. WINREVAIR [Suspect]
     Active Substance: SOTATERCEPT-CSRK
     Indication: Pulmonary arterial hypertension
     Dosage: INJECT 0.4 ML UNDER THE SKIN FOR ONE DOSE THEN INCREASE TO 0.9 ML FOR TARGET DOSE AFTER 3 WEEKS ?
     Route: 058
     Dates: start: 202405
  2. WINREVAIR [Suspect]
     Active Substance: SOTATERCEPT-CSRK
     Dosage: OTHER FREQUENCY : TARG DOSE AFT 3WKS;?
     Route: 058
     Dates: start: 202405
  3. DEVICE [Concomitant]
     Active Substance: DEVICE
  4. SODIUM CHLORIDE [Concomitant]
     Active Substance: SODIUM CHLORIDE
  5. VELETRI SDV [Concomitant]
  6. TADALAFIL [Concomitant]
     Active Substance: TADALAFIL
  7. OPSUMIT [Concomitant]
     Active Substance: MACITENTAN

REACTIONS (2)
  - Haemorrhage [None]
  - Procedural complication [None]
